FAERS Safety Report 11395008 (Version 1)
Quarter: 2015Q3

REPORT INFORMATION
  Report Type: Spontaneous
  Country: GB (occurrence: GB)
  Receive Date: 20150819
  Receipt Date: 20150819
  Transmission Date: 20151125
  Serious: Yes (Other)
  Sender: FDA-Public Use
  Company Number: GB-TEVA-585599ACC

PATIENT
  Age: 48 Year
  Sex: Female
  Weight: 78 kg

DRUGS (19)
  1. BACLOFEN. [Concomitant]
     Active Substance: BACLOFEN
     Dosage: 3 DOSAGE FORMS DAILY;
     Dates: start: 20141028
  2. MACROGOL [Concomitant]
     Active Substance: POLYETHYLENE GLYCOLS
     Dosage: ONE SACHET TO BE TAKEN AS DIRECTED
     Dates: start: 20141028
  3. MORPHINE SULFATE. [Concomitant]
     Active Substance: MORPHINE SULFATE
     Dosage: TAKE ONE AS NEEDED UP TO 2-3 TIMES DAILY
     Dates: start: 20141028
  4. MST CONTINUS [Concomitant]
     Active Substance: MORPHINE SULFATE
     Dosage: 2 DOSAGE FORMS DAILY;
     Dates: start: 20141028
  5. OMEPRAZOLE. [Concomitant]
     Active Substance: OMEPRAZOLE
     Dosage: 2 DOSAGE FORMS DAILY;
     Dates: start: 20141028
  6. PARACETAMOL [Concomitant]
     Active Substance: ACETAMINOPHEN
     Dosage: ONE OR TWO TO BE TAKEN FOUR TIMES A DAY
     Dates: start: 20141028
  7. VISCOTEARS [Concomitant]
     Active Substance: CARBOMER
     Dates: start: 20141028
  8. BETAMETHASONE VALERATE. [Concomitant]
     Active Substance: BETAMETHASONE VALERATE
     Dosage: 2 DOSAGE FORMS DAILY;
     Dates: start: 20150601, end: 20150615
  9. PREGABALIN. [Concomitant]
     Active Substance: PREGABALIN
     Dosage: 2 DOSAGE FORMS DAILY;
     Dates: start: 20150309
  10. PREDNISOLONE. [Concomitant]
     Active Substance: PREDNISOLONE
     Dates: start: 20150629, end: 20150706
  11. SIMVASTATIN. [Concomitant]
     Active Substance: SIMVASTATIN
     Dosage: 1 DOSAGE FORMS DAILY; AT NIGHT
     Dates: start: 20141028
  12. AMITRIPTYLINE HYDROCHLORIDE. [Concomitant]
     Active Substance: AMITRIPTYLINE HYDROCHLORIDE
     Dosage: 1 DOSAGE FORMS DAILY; AT NIGHT
     Dates: start: 20141028
  13. ASPIRIN. [Concomitant]
     Active Substance: ASPIRIN
     Dosage: 1 DOSAGE FORMS DAILY;
     Dates: start: 20141028
  14. DERMOVATE [Concomitant]
     Active Substance: CLOBETASOL
     Dosage: 1 DOSAGE FORMS DAILY;
     Dates: start: 20141028
  15. VENLAFAXINE [Concomitant]
     Active Substance: VENLAFAXINE HYDROCHLORIDE
     Dosage: 2 DOSAGE FORMS DAILY; ONE TO BE TAKEN TWICE DAILY (HAVE BLOOD PRESSUR...
     Dates: start: 20150218
  16. QUININE [Suspect]
     Active Substance: QUININE
  17. DOUBLEBASE [Concomitant]
     Active Substance: ISOPROPYL MYRISTATE\PARAFFIN
     Indication: DRY SKIN
     Dates: start: 20150601, end: 20150701
  18. PIZOTIFEN [Concomitant]
     Active Substance: PIZOTYLINE
     Dosage: 1 DOSAGE FORMS DAILY; TAKE ONE DAILY
     Dates: start: 20141028
  19. RANITIDINE [Concomitant]
     Active Substance: RANITIDINE\RANITIDINE HYDROCHLORIDE
     Dosage: 1 DOSAGE FORMS DAILY; AT NIGHT
     Dates: start: 20141028

REACTIONS (2)
  - Oral mucosal blistering [Recovering/Resolving]
  - Rash [Recovering/Resolving]

NARRATIVE: CASE EVENT DATE: 20150730
